FAERS Safety Report 18439875 (Version 1)
Quarter: 2020Q4

REPORT INFORMATION
  Report Type: Spontaneous
  Country: GB (occurrence: GB)
  Receive Date: 20201029
  Receipt Date: 20201029
  Transmission Date: 20210114
  Serious: Yes (Disabling, Other)
  Sender: FDA-Public Use
  Company Number: GB-TEVA-2020-GB-1841411

PATIENT
  Age: 34 Year
  Sex: Male
  Weight: 83.4 kg

DRUGS (1)
  1. OFLOXACIN. [Suspect]
     Active Substance: OFLOXACIN
     Indication: EPIDIDYMITIS
     Dosage: TOTAL,600MG
     Route: 048
     Dates: start: 20200918, end: 20200919

REACTIONS (13)
  - Hypoaesthesia [Not Recovered/Not Resolved]
  - Palpitations [Not Recovered/Not Resolved]
  - Back pain [Not Recovered/Not Resolved]
  - Anxiety [Recovering/Resolving]
  - Diarrhoea [Recovered/Resolved]
  - Poor quality sleep [Recovering/Resolving]
  - Hot flush [Recovered/Resolved]
  - Paraesthesia [Not Recovered/Not Resolved]
  - Palpitations [Recovering/Resolving]
  - Arthralgia [Not Recovered/Not Resolved]
  - Pain in extremity [Not Recovered/Not Resolved]
  - Tendon pain [Not Recovered/Not Resolved]
  - Fatigue [Not Recovered/Not Resolved]

NARRATIVE: CASE EVENT DATE: 20200919
